FAERS Safety Report 17731332 (Version 3)
Quarter: 2021Q1

REPORT INFORMATION
  Report Type: Spontaneous
  Country: US (occurrence: US)
  Receive Date: 20200430
  Receipt Date: 20210215
  Transmission Date: 20210419
  Serious: No
  Sender: FDA-Public Use
  Company Number: US-AKCEA THERAPEUTICS-2020IS001120

PATIENT
  Age: 68 Year
  Sex: Male
  Weight: 74.4 kg

DRUGS (2)
  1. TEGSEDI [Suspect]
     Active Substance: INOTERSEN SODIUM
     Indication: HEREDITARY NEUROPATHIC AMYLOIDOSIS
     Route: 058
  2. ISSD (INTEGRATED SYRINGE SAFETY DEVICE) [Suspect]
     Active Substance: DEVICE

REACTIONS (22)
  - Aspartate aminotransferase abnormal [Unknown]
  - Nausea [Not Recovered/Not Resolved]
  - Illness [Not Recovered/Not Resolved]
  - Blood creatinine increased [Unknown]
  - Protein urine present [Unknown]
  - Feeling abnormal [Unknown]
  - Alanine aminotransferase abnormal [Unknown]
  - Injection site pain [Not Recovered/Not Resolved]
  - Pyrexia [Unknown]
  - Glomerular filtration rate decreased [Unknown]
  - Urine abnormality [Unknown]
  - Urinary sediment present [Unknown]
  - Urinary casts [Not Recovered/Not Resolved]
  - Urine protein/creatinine ratio increased [Unknown]
  - Influenza like illness [Unknown]
  - Bacterial test positive [Not Recovered/Not Resolved]
  - Chills [Not Recovered/Not Resolved]
  - Crystal urine present [Not Recovered/Not Resolved]
  - Pyuria [Unknown]
  - Headache [Not Recovered/Not Resolved]
  - Urinary occult blood positive [Unknown]
  - Urine leukocyte esterase positive [Unknown]

NARRATIVE: CASE EVENT DATE: 20200310
